FAERS Safety Report 23172424 (Version 1)
Quarter: 2023Q4

REPORT INFORMATION
  Report Type: Spontaneous
  Country: US (occurrence: None)
  Receive Date: 20231110
  Receipt Date: 20231110
  Transmission Date: 20240110
  Serious: Yes (Other)
  Sender: FDA-Public Use
  Company Number: None

PATIENT
  Age: 82 Year
  Sex: Male
  Weight: 109.9 kg

DRUGS (1)
  1. LUMASON [Suspect]
     Active Substance: SULFUR HEXAFLUORIDE
     Route: 040
     Dates: start: 20230929, end: 20230929

REACTIONS (3)
  - Pulseless electrical activity [None]
  - Procedural complication [None]
  - Contrast media reaction [None]

NARRATIVE: CASE EVENT DATE: 20230929
